FAERS Safety Report 4760383-X (Version None)
Quarter: 2005Q3

REPORT INFORMATION
  Report Type: 
  Country: None (occurrence: None)
  Receive Date: 20050902
  Receipt Date: 20050830
  Transmission Date: 20060218
  Serious: Yes (Other)
  Sender: FDA-Public Use
  Company Number: US-GLAXOSMITHKLINE-A0572390A

PATIENT
  Age: 84 Year
  Sex: Male

DRUGS (13)
  1. COREG [Suspect]
     Dosage: 3.125MG TWICE PER DAY
     Route: 048
     Dates: start: 20050705
  2. GLIPIZIDE [Suspect]
     Dosage: 5MG TWICE PER DAY
     Route: 048
     Dates: end: 20050825
  3. METFORMIN [Suspect]
     Dosage: 500MG TWICE PER DAY
     Route: 048
     Dates: end: 20050818
  4. AMIODARONE [Concomitant]
  5. MULTIVITAMIN [Concomitant]
  6. ASPIRIN [Concomitant]
  7. FUROSEMIDE [Concomitant]
  8. GLUCERNA [Concomitant]
  9. LEVOXYL [Concomitant]
  10. LIPITOR [Concomitant]
  11. LISINOPRIL [Concomitant]
  12. NEXIUM [Concomitant]
  13. WARFARIN SODIUM [Concomitant]

REACTIONS (3)
  - DRUG INTERACTION [None]
  - HYPERGLYCAEMIA [None]
  - HYPOGLYCAEMIA [None]
